FAERS Safety Report 24030574 (Version 1)
Quarter: 2024Q2

REPORT INFORMATION
  Report Type: Spontaneous
  Country: CA (occurrence: CA)
  Receive Date: 20240628
  Receipt Date: 20240628
  Transmission Date: 20240716
  Serious: No
  Sender: FDA-Public Use
  Company Number: CA-PFIZER INC-202400193116

PATIENT
  Age: 60 Year
  Sex: Female

DRUGS (1)
  1. ABRILADA [Suspect]
     Active Substance: ADALIMUMAB-AFZB
     Indication: Psoriasis
     Dosage: INDUCTION 80MG WEEK 0 THEN 40MG EVERY 2 WEEKS STARTING WEEK 1
     Route: 058
     Dates: start: 20240308

REACTIONS (2)
  - Therapeutic product effect incomplete [Unknown]
  - Injection site pain [Unknown]
